FAERS Safety Report 4494074-X (Version None)
Quarter: 2004Q4

REPORT INFORMATION
  Report Type: 
  Country: None (occurrence: None)
  Receive Date: 20041105
  Receipt Date: 20040219
  Transmission Date: 20050328
  Serious: Yes (Hospitalization, Disabling)
  Sender: FDA-Public Use
  Company Number: US-MERCK-0402USA01452

PATIENT
  Age: 70 Year
  Sex: Female
  Weight: 75 kg

DRUGS (16)
  1. TAGAMET [Concomitant]
     Indication: ULCER
     Route: 065
  2. ESTROPIPATE [Concomitant]
     Indication: HORMONE REPLACEMENT THERAPY
     Route: 065
     Dates: start: 19930115, end: 20031114
  3. POTASSIUM (UNSPECIFIED) [Concomitant]
     Route: 065
  4. VIOXX [Suspect]
     Indication: ARTHRITIS
     Route: 048
     Dates: start: 20000731, end: 20021101
  5. LASIX [Concomitant]
     Indication: OEDEMA PERIPHERAL
     Route: 065
     Dates: start: 19990716, end: 20021114
  6. DRIXORAL [Concomitant]
     Route: 065
  7. ELAVIL [Concomitant]
     Route: 065
  8. TIAZAC [Concomitant]
     Route: 065
  9. HYDROCHLOROTHIAZIDE [Concomitant]
     Route: 065
  10. IRON (UNSPECIFIED) [Concomitant]
     Route: 065
  11. CYANOCOBALAMIN [Concomitant]
     Route: 065
  12. ASPIRIN [Concomitant]
     Route: 065
  13. ASCORBIC ACID [Concomitant]
     Route: 065
  14. VITAMIN E [Concomitant]
     Route: 065
  15. MAGNESIUM (UNSPECIFIED) [Concomitant]
     Route: 065
  16. CALCIUM (UNSPECIFIED) [Concomitant]
     Route: 065

REACTIONS (20)
  - ANAEMIA [None]
  - BLOOD GLUCOSE ABNORMAL [None]
  - CARDIAC FAILURE CONGESTIVE [None]
  - CEREBROVASCULAR ACCIDENT [None]
  - CHOLELITHIASIS [None]
  - COLON NEOPLASM [None]
  - DECUBITUS ULCER [None]
  - DEPRESSION [None]
  - DIVERTICULITIS [None]
  - ELECTROLYTE IMBALANCE [None]
  - EMOTIONAL DISTRESS [None]
  - FALL [None]
  - FEMUR FRACTURE [None]
  - GASTRITIS EROSIVE [None]
  - INSOMNIA [None]
  - LIVER DISORDER [None]
  - OBESITY [None]
  - PNEUMATOSIS CYSTOIDES INTESTINALIS [None]
  - RASH [None]
  - REFLUX OESOPHAGITIS [None]
